FAERS Safety Report 4766902-1 (Version None)
Quarter: 2005Q3

REPORT INFORMATION
  Report Type: 
  Country: None (occurrence: None)
  Receive Date: 20050909
  Receipt Date: 20050828
  Transmission Date: 20060218
  Serious: Yes (Other)
  Sender: FDA-Public Use
  Company Number: 2005120994

PATIENT
  Age: 60 Year
  Sex: Female

DRUGS (1)
  1. UNASYN [Suspect]
     Indication: URINARY TRACT INFECTION
     Dosage: 1.5 GRAM (1.5 GRAM, ONCE INTERVAL: EVERY DAY), INTRAMUSCULAR
     Route: 030
     Dates: start: 20040901, end: 20040901

REACTIONS (3)
  - DIZZINESS [None]
  - FACE OEDEMA [None]
  - LOSS OF CONSCIOUSNESS [None]
